FAERS Safety Report 6128003-X (Version None)
Quarter: 2009Q1

REPORT INFORMATION
  Report Type: 
  Country: None (occurrence: None)
  Receive Date: 20090323
  Receipt Date: 20090316
  Transmission Date: 20090719
  Serious: Yes (Other)
  Sender: FDA-Public Use
  Company Number: US-AVENTIS-200912090US

PATIENT
  Sex: Female

DRUGS (2)
  1. TAXOTERE [Suspect]
     Indication: BREAST CANCER FEMALE
     Dosage: DOSE: UNK
     Route: 042
     Dates: start: 20090101, end: 20090101
  2. CYTOXAN [Suspect]
     Dosage: DOSE: UNK
     Dates: start: 20090101, end: 20090101

REACTIONS (1)
  - NECROSIS [None]
